FAERS Safety Report 13961161 (Version 1)
Quarter: 2017Q3

REPORT INFORMATION
  Report Type: Spontaneous
  Country: CH (occurrence: CH)
  Receive Date: 20170912
  Receipt Date: 20170912
  Transmission Date: 20171128
  Serious: Yes (Other)
  Sender: FDA-Public Use
  Company Number: CH-JNJFOC-20170907517

PATIENT
  Age: 38 Year
  Sex: Female

DRUGS (8)
  1. CALCORT [Concomitant]
     Active Substance: DEFLAZACORT
     Dosage: IN THE MORNING
     Route: 065
     Dates: start: 20170626
  2. CALCORT [Concomitant]
     Active Substance: DEFLAZACORT
     Route: 065
     Dates: start: 20170625
  3. SPIRICORT [Concomitant]
     Active Substance: PREDNISOLONE
     Route: 048
  4. MESALAZINE [Concomitant]
     Active Substance: MESALAMINE
     Route: 048
  5. REMICADE [Suspect]
     Active Substance: INFLIXIMAB
     Indication: COLITIS ULCERATIVE
     Route: 042
  6. REMICADE [Suspect]
     Active Substance: INFLIXIMAB
     Indication: COLITIS ULCERATIVE
     Route: 042
     Dates: start: 20170626, end: 20170626
  7. VI-DE 3 [Concomitant]
     Active Substance: CHOLECALCIFEROL
     Route: 065
  8. CALCIMAGON D3 [Concomitant]
     Active Substance: CALCIUM\CHOLECALCIFEROL
     Route: 065

REACTIONS (8)
  - Tremor [Recovered/Resolved]
  - Pyrexia [Recovered/Resolved]
  - Vomiting [Recovered/Resolved]
  - Nausea [Recovered/Resolved]
  - Abdominal pain upper [Recovered/Resolved]
  - Tachycardia [Recovered/Resolved]
  - Infusion related reaction [Recovered/Resolved]
  - Hypotension [Recovered/Resolved]

NARRATIVE: CASE EVENT DATE: 20170626
